FAERS Safety Report 25452234 (Version 1)
Quarter: 2025Q2

REPORT INFORMATION
  Report Type: Spontaneous
  Country: NL (occurrence: NL)
  Receive Date: 20250618
  Receipt Date: 20250618
  Transmission Date: 20250716
  Serious: Yes (Hospitalization, Other)
  Sender: BIOVITRUM
  Company Number: NL-BIOVITRUM-2025-NL-008436

PATIENT
  Age: 10 Year
  Sex: Female

DRUGS (1)
  1. ANAKINRA [Suspect]
     Active Substance: ANAKINRA
     Indication: Still^s disease
     Route: 058

REACTIONS (1)
  - Haemophagocytic lymphohistiocytosis [Unknown]
